FAERS Safety Report 17264306 (Version 1)
Quarter: 2020Q1

REPORT INFORMATION
  Report Type: Spontaneous
  Country: HU (occurrence: HU)
  Receive Date: 20200113
  Receipt Date: 20200113
  Transmission Date: 20200409
  Serious: Yes (Other)
  Sender: FDA-Public Use
  Company Number: HU-MYLANLABS-2020M1003355

PATIENT
  Age: 9 Year
  Sex: Male

DRUGS (13)
  1. AZITHROMYCIN ANHYDROUS. [Suspect]
     Active Substance: AZITHROMYCIN ANHYDROUS
     Indication: HEADACHE
     Dosage: UNK
     Route: 048
  2. AZITHROMYCIN ANHYDROUS. [Suspect]
     Active Substance: AZITHROMYCIN ANHYDROUS
     Indication: COUGH
  3. AMOXICILLIN AND CLAVULANATE POTASSIUM [Suspect]
     Active Substance: AMOXICILLIN\CLAVULANATE POTASSIUM
     Indication: PRODUCT USED FOR UNKNOWN INDICATION
     Dosage: UNK
     Route: 065
  4. VANCOMYCIN [Suspect]
     Active Substance: VANCOMYCIN
     Indication: SUBDURAL ABSCESS
  5. AZITHROMYCIN ANHYDROUS. [Suspect]
     Active Substance: AZITHROMYCIN ANHYDROUS
     Indication: PYREXIA
  6. VANCOMYCIN [Suspect]
     Active Substance: VANCOMYCIN
     Indication: BRAIN ABSCESS
     Dosage: UNK
     Route: 065
  7. MEROPENEM. [Suspect]
     Active Substance: MEROPENEM
     Indication: SUBDURAL ABSCESS
     Dosage: UNK
     Route: 065
  8. MEROPENEM. [Suspect]
     Active Substance: MEROPENEM
     Indication: SINUSITIS
  9. VANCOMYCIN [Suspect]
     Active Substance: VANCOMYCIN
     Indication: SINUSITIS
  10. AZITHROMYCIN ANHYDROUS. [Suspect]
     Active Substance: AZITHROMYCIN ANHYDROUS
     Indication: RHINITIS
  11. CEFTRIAXONE. [Suspect]
     Active Substance: CEFTRIAXONE
     Indication: PRODUCT USED FOR UNKNOWN INDICATION
     Dosage: UNK
     Route: 065
  12. METRONIDAZOLE. [Suspect]
     Active Substance: METRONIDAZOLE
     Indication: PRODUCT USED FOR UNKNOWN INDICATION
     Dosage: UNK
     Route: 065
  13. MEROPENEM. [Suspect]
     Active Substance: MEROPENEM
     Indication: BRAIN ABSCESS

REACTIONS (12)
  - Sinusitis bacterial [Recovering/Resolving]
  - Inflammatory marker increased [Recovering/Resolving]
  - Sinusitis [Recovering/Resolving]
  - Subdural abscess [Recovering/Resolving]
  - Brain abscess [Recovering/Resolving]
  - Infection [Recovering/Resolving]
  - Altered state of consciousness [Recovering/Resolving]
  - Vomiting [Recovering/Resolving]
  - Product use in unapproved indication [Unknown]
  - Partial seizures [Recovering/Resolving]
  - Apathy [Recovering/Resolving]
  - Drug ineffective [Unknown]
